FAERS Safety Report 8092600-5 (Version None)
Quarter: 2012Q1

REPORT INFORMATION
  Report Type: 
  Country: None (occurrence: None)
  Receive Date: 20120130
  Receipt Date: 20120130
  Transmission Date: 20120608
  Serious: Yes (Hospitalization)
  Sender: FDA-Public Use
  Company Number: None

PATIENT
  Age: 61 Year
  Sex: Male
  Weight: 76.4 kg

DRUGS (2)
  1. SIMVASTATIN [Suspect]
     Indication: HYPERLIPIDAEMIA
     Dosage: 80 MG HS PO
     Route: 048
     Dates: start: 20090708, end: 20111113
  2. SIMVASTATIN [Suspect]
     Indication: CORONARY ARTERIAL STENT INSERTION
     Dosage: 80 MG HS PO
     Route: 048
     Dates: start: 20090708, end: 20111113

REACTIONS (2)
  - RHABDOMYOLYSIS [None]
  - CHROMATURIA [None]
